FAERS Safety Report 24423022 (Version 1)
Quarter: 2024Q4

REPORT INFORMATION
  Report Type: Spontaneous
  Country: TR (occurrence: TR)
  Receive Date: 20241010
  Receipt Date: 20241010
  Transmission Date: 20250115
  Serious: Yes (Other)
  Sender: RANBAXY
  Company Number: TR-SUN PHARMACEUTICAL INDUSTRIES LTD-2024R1-472559

PATIENT
  Age: 47 Year
  Sex: Female

DRUGS (10)
  1. CARBOPLATIN [Suspect]
     Active Substance: CARBOPLATIN
     Indication: Breast cancer
     Dosage: UNK
     Route: 065
     Dates: start: 201602
  2. CARBOPLATIN [Suspect]
     Active Substance: CARBOPLATIN
     Indication: Ovarian cancer
  3. PACLITAXEL [Suspect]
     Active Substance: PACLITAXEL
     Indication: Breast cancer
     Dosage: UNK
     Route: 065
     Dates: start: 201602
  4. PACLITAXEL [Suspect]
     Active Substance: PACLITAXEL
     Indication: Ovarian cancer
  5. ESCITALOPRAM [Suspect]
     Active Substance: ESCITALOPRAM OXALATE
     Indication: Depressed mood
     Dosage: 10 MILLIGRAM
     Route: 065
     Dates: start: 201605
  6. CLOZAPINE [Suspect]
     Active Substance: CLOZAPINE
     Indication: Breast cancer
     Dosage: 500 MILLIGRAM
     Route: 065
  7. CLOZAPINE [Suspect]
     Active Substance: CLOZAPINE
     Indication: Ovarian cancer
  8. TRASTUZUMAB [Suspect]
     Active Substance: TRASTUZUMAB
     Indication: Breast cancer
     Dosage: UNK
     Route: 065
     Dates: start: 201602
  9. TRASTUZUMAB [Suspect]
     Active Substance: TRASTUZUMAB
     Indication: Ovarian cancer
  10. ANASTROZOLE [Concomitant]
     Active Substance: ANASTROZOLE
     Indication: Product used for unknown indication
     Dosage: 10 MILLIGRAM
     Route: 065
     Dates: start: 201605

REACTIONS (1)
  - Disease recurrence [Unknown]

NARRATIVE: CASE EVENT DATE: 20170201
